FAERS Safety Report 16313573 (Version 2)
Quarter: 2019Q2

REPORT INFORMATION
  Report Type: Report from Study
  Country: US (occurrence: US)
  Receive Date: 20190515
  Receipt Date: 20190620
  Transmission Date: 20190711
  Serious: Yes (Death, Other)
  Sender: FDA-Public Use
  Company Number: US-GILEAD-2019-0407700

PATIENT
  Age: 73 Year
  Sex: Female
  Weight: 47.17 kg

DRUGS (7)
  1. AMBRISENTAN [Suspect]
     Active Substance: AMBRISENTAN
     Indication: SARCOIDOSIS
  2. LIPITOR [Concomitant]
     Active Substance: ATORVASTATIN CALCIUM
  3. VITAMIN D [COLECALCIFEROL] [Concomitant]
     Active Substance: CHOLECALCIFEROL
  4. AMBRISENTAN [Suspect]
     Active Substance: AMBRISENTAN
     Indication: PULMONARY HYPERTENSION
     Dosage: 10 MG, QD
     Route: 048
     Dates: start: 20110613
  5. GLICLAZIDE [Concomitant]
     Active Substance: GLICLAZIDE
  6. ASPIRIN 81 [Concomitant]
     Active Substance: ASPIRIN
  7. AMBRISENTAN [Suspect]
     Active Substance: AMBRISENTAN
     Indication: ATRIAL SEPTAL DEFECT

REACTIONS (1)
  - Metastatic neoplasm [Fatal]

NARRATIVE: CASE EVENT DATE: 20190510
